FAERS Safety Report 15717567 (Version 1)
Quarter: 2018Q4

REPORT INFORMATION
  Report Type: Spontaneous
  Country: US (occurrence: US)
  Receive Date: 20181129
  Receipt Date: 20181129
  Transmission Date: 20190205
  Serious: No
  Sender: FDA-Public Use
  Company Number: None

PATIENT

DRUGS (2)
  1. LEVETIRACETAM IN 0.54% SODIUM CHLORIDE [Suspect]
     Active Substance: LEVETIRACETAM
  2. LEVETIRACETAM IN 0.75% SODIUM CHLORIDE [Suspect]
     Active Substance: LEVETIRACETAM

REACTIONS (2)
  - Product label issue [None]
  - Circumstance or information capable of leading to medication error [None]
